FAERS Safety Report 8823881 (Version 1)
Quarter: 2012Q4

REPORT INFORMATION
  Report Type: Report from Study
  Country: JP (occurrence: JP)
  Receive Date: 20121003
  Receipt Date: 20121003
  Transmission Date: 20130627
  Serious: Yes (Other)
  Sender: FDA-Public Use
  Company Number: JP-009507513-2011SP041924

PATIENT
  Age: 61 Year
  Sex: Female
  Weight: 60.5 kg

DRUGS (15)
  1. RIBAVIRIN [Suspect]
     Indication: HEPATITIS C
     Dosage: 400 mg, BID
     Route: 048
     Dates: start: 20100324, end: 20110808
  2. INTERFERON BETA [Suspect]
     Indication: HEPATITIS C
     Dosage: 6 million IU, QD
     Route: 041
     Dates: start: 20100324, end: 20100330
  3. INTERFERON BETA [Suspect]
     Dosage: 6 million IU, QD
     Route: 042
     Dates: start: 20100331, end: 20100402
  4. INTERFERON BETA [Suspect]
     Dosage: 3 million IU, UNK
     Route: 042
     Dates: start: 20100404, end: 20100412
  5. INTERFERON BETA [Suspect]
     Dosage: 6 million IU, QD
     Route: 042
     Dates: start: 20100413, end: 20100417
  6. INTERFERON BETA [Suspect]
     Dosage: 3 million IU, QD
     Route: 042
     Dates: start: 20100418, end: 20100419
  7. INTERFERON BETA [Suspect]
     Dosage: 6 million IU, TIW
     Route: 042
     Dates: start: 20100421, end: 20110808
  8. VOLTAREN [Concomitant]
     Indication: PYREXIA
     Dosage: 25 mg, UNK
     Route: 054
     Dates: start: 20100324, end: 20100328
  9. VOLTAREN [Concomitant]
     Indication: PYREXIA
     Dosage: 25 mg, UNK
     Route: 054
     Dates: start: 20100329, end: 20100419
  10. VOLTAREN [Concomitant]
     Indication: PYREXIA
     Dosage: 25 mg, TIW
     Route: 054
     Dates: start: 20100421, end: 20110808
  11. BLADDERON [Concomitant]
     Indication: POLLAKIURIA
     Dosage: 600 mg, QW
     Route: 048
  12. AMDINOCILLIN PIVOXIL HYDROCHLORIDE [Concomitant]
     Indication: CYSTITIS NONINFECTIVE
     Dosage: 150 mg, QW
     Route: 048
  13. LEXOTAN [Concomitant]
     Indication: NEUROSIS
     Dosage: 6 mg, TIW
     Route: 048
  14. MYSLEE [Concomitant]
     Indication: INSOMNIA
     Dosage: 5 mg, QD
     Route: 048
  15. MARZULENE ES [Concomitant]
     Indication: GASTRITIS
     Dosage: 1 g, QD
     Route: 048
     Dates: end: 20101105

REACTIONS (3)
  - Nephrotic syndrome [Recovered/Resolved]
  - Proteinuria [Recovered/Resolved]
  - Neutrophil count decreased [Recovered/Resolved]
